FAERS Safety Report 19025454 (Version 2)
Quarter: 2021Q2

REPORT INFORMATION
  Report Type: Spontaneous
  Country: US (occurrence: US)
  Receive Date: 20210318
  Receipt Date: 20210416
  Transmission Date: 20210717
  Serious: Yes (Other)
  Sender: FDA-Public Use
  Company Number: US-IMPRIMIS NJOF-2108150

PATIENT
  Sex: Male

DRUGS (1)
  1. TRIAMCINOLONE?MOXIFLOXACIN (15/1) MG/ML [Suspect]
     Active Substance: MOXIFLOXACIN\TRIAMCINOLONE
     Indication: CATARACT
     Route: 031
     Dates: start: 20210120, end: 20210120

REACTIONS (1)
  - Visual impairment [Recovering/Resolving]
